FAERS Safety Report 20324091 (Version 2)
Quarter: 2022Q1

REPORT INFORMATION
  Report Type: Report from Study
  Country: US (occurrence: US)
  Receive Date: 20220111
  Receipt Date: 20220119
  Transmission Date: 20220424
  Serious: Yes (Hospitalization)
  Sender: FDA-Public Use
  Company Number: US-PFIZER INC-202200004810

PATIENT
  Age: 14 Year
  Sex: Male
  Weight: 65 kg

DRUGS (5)
  1. TEMSIROLIMUS [Suspect]
     Active Substance: TEMSIROLIMUS
     Dosage: 15MG/M2 FOR PATIENTS }= 10 KG (MAX DOSE 25MG) OR 0.5 MG/KG FOR PATIENTS { 10 KG IV OVER 30-60 MINUTE
     Route: 042
     Dates: start: 20160829, end: 20160926
  2. CAMPTOSAR [Suspect]
     Active Substance: IRINOTECAN HYDROCHLORIDE
     Dosage: 50MG/M2 FOR PATIENTS }= 0.6 M2 (MAX DOSE 100 MG) OR PER DOSING TABLE FOR PATIENTS { 0.6 M2 IV OVER 9
     Route: 042
     Dates: start: 20160912, end: 20160916
  3. VINCRISTINE SULFATE [Suspect]
     Active Substance: VINCRISTINE SULFATE
     Dosage: 1.5MG/M2 FOR PATIENTS }= 0.6 M2 (MAX DOSE 2MG) OR PER DOSING TABLE FOR PATIENTS { 0.6 M2 IV OVER 1 M
     Dates: start: 20160912, end: 20160926
  4. DACTINOMYCIN [Suspect]
     Active Substance: DACTINOMYCIN
     Dosage: 0.05MG/KG FOR PATIENTS }= 14 KG (MAX DOSE 2.5MG) OR PER DOSING TABLE FOR PATIENTS { 14 KG IV OVER 1-
     Route: 042
  5. CYCLOPHOSPHAMIDE [Suspect]
     Active Substance: CYCLOPHOSPHAMIDE
     Dosage: 1200MG/M2 FOR PATIENTS }= 0.6 M2 OR PER DOSING TABLE FOR PATIENTS { 0.6 M2 IV OVER 60 MINUTES ON DAY
     Route: 042

REACTIONS (1)
  - Stomatitis [Recovering/Resolving]

NARRATIVE: CASE EVENT DATE: 20160929
